FAERS Safety Report 7973602-3 (Version None)
Quarter: 2011Q4

REPORT INFORMATION
  Report Type: 
  Country: None (occurrence: None)
  Receive Date: 20111201
  Receipt Date: 20111128
  Transmission Date: 20120403
  Serious: Yes (Hospitalization)
  Sender: FDA-Public Use
  Company Number: 2011SP041978

PATIENT
  Age: 76 Year
  Sex: Male
  Weight: 60 kg

DRUGS (17)
  1. LASIX [Concomitant]
  2. DIGOXIN [Concomitant]
  3. PRAVASTATIN [Concomitant]
  4. POTASSIUM CHLORIDE [Concomitant]
  5. FLUTICASONE PROPIONATE/SALMETEROL [Concomitant]
  6. BEVACIZUMAB (BEVACIZUMAB) [Suspect]
     Indication: GLIOBLASTOMA
     Dates: end: 20110826
  7. BEVACIZUMAB (BEVACIZUMAB) [Suspect]
     Indication: GLIOBLASTOMA
     Dates: end: 20111104
  8. BEVACIZUMAB (BEVACIZUMAB) [Suspect]
     Indication: GLIOBLASTOMA
     Dates: start: 20110909, end: 20110923
  9. BEVACIZUMAB (BEVACIZUMAB) [Suspect]
     Indication: GLIOBLASTOMA
     Dates: start: 20110715
  10. LANSOPRAZOLE [Concomitant]
  11. NEXIUM [Concomitant]
  12. MEDROL [Concomitant]
  13. TEMOZOLOMIDE [Suspect]
     Indication: GLIOBLASTOMA
     Dosage: 150 MG/M2; ;PO
     Route: 048
     Dates: start: 20110715
  14. TEMOZOLOMIDE [Suspect]
     Indication: GLIOBLASTOMA
     Dosage: 150 MG/M2; ;PO
     Route: 048
     Dates: end: 20110816
  15. TEMOZOLOMIDE [Suspect]
     Indication: GLIOBLASTOMA
     Dosage: 150 MG/M2; ;PO
     Route: 048
     Dates: start: 20110909, end: 20110913
  16. LAMICTAL [Concomitant]
  17. DILTIAZEM HCL [Concomitant]

REACTIONS (2)
  - BRONCHITIS [None]
  - SUPERINFECTION [None]
